FAERS Safety Report 6807867-8 (Version None)
Quarter: 2010Q2

REPORT INFORMATION
  Report Type: 
  Country: None (occurrence: None)
  Receive Date: 20100629
  Receipt Date: 20090122
  Transmission Date: 20101027
  Serious: Yes (Other)
  Sender: FDA-Public Use
  Company Number: US-PFIZER INC-2009159655

PATIENT
  Sex: Male

DRUGS (5)
  1. BEXTRA [Suspect]
     Dosage: 20 MG, UNK
     Route: 048
     Dates: start: 20020712, end: 20041028
  2. TRIAZOLAM [Concomitant]
     Dosage: UNK
     Route: 048
  3. LEVOXYL [Concomitant]
     Route: 048
  4. PREDNISONE [Concomitant]
     Route: 048
  5. HYDROXYCHLOROQUINE [Concomitant]
     Route: 048

REACTIONS (1)
  - MYOCARDIAL INFARCTION [None]
